FAERS Safety Report 4351334-0 (Version None)
Quarter: 2004Q2

REPORT INFORMATION
  Report Type: 
  Country: None (occurrence: None)
  Receive Date: 20040503
  Receipt Date: 20040421
  Transmission Date: 20050107
  Serious: Yes (Other)
  Sender: FDA-Public Use
  Company Number: GB-JNJFOC-20040200170

PATIENT
  Sex: Male

DRUGS (3)
  1. RISPERDAL [Suspect]
     Indication: SCHIZOPHRENIA
     Route: 049
     Dates: start: 20031201, end: 20040120
  2. CLOZAPINE [Interacting]
     Indication: SCHIZOPHRENIA
     Route: 065
  3. LORAZEPAM [Concomitant]
     Indication: AGITATION
     Route: 065

REACTIONS (7)
  - AGITATION [None]
  - BLOOD BILIRUBIN ABNORMAL [None]
  - BLOOD CREATINE PHOSPHOKINASE INCREASED [None]
  - BLOOD UREA DECREASED [None]
  - CONFUSIONAL STATE [None]
  - DRUG INTERACTION [None]
  - HALLUCINATION [None]
